FAERS Safety Report 6079433-6 (Version None)
Quarter: 2009Q1

REPORT INFORMATION
  Report Type: 
  Country: None (occurrence: None)
  Receive Date: 20090216
  Receipt Date: 20090204
  Transmission Date: 20090719
  Serious: Yes (Other)
  Sender: FDA-Public Use
  Company Number: PHHY2009BR04297

PATIENT
  Age: 58 Year
  Sex: Male

DRUGS (8)
  1. DIOVAN HCT [Suspect]
     Dosage: 80/12.5 MG
     Dates: start: 20040401
  2. DIOVAN HCT [Suspect]
     Dosage: 160/12.5 MG ONCE DAILY
  3. DIOVAN HCT [Suspect]
     Dosage: 160/12.5 MG, 2 TAB DAILY
  4. ATENOLOL [Concomitant]
     Dosage: 25 MG, QD
     Route: 048
  5. AAS [Concomitant]
     Dosage: 2 DF, QD
     Route: 048
  6. CIPROFIBRATE [Concomitant]
     Indication: BLOOD TRIGLYCERIDES
     Dosage: 1 DF, QD
     Route: 048
  7. DAFLON (DIOSMIN) [Concomitant]
     Indication: ANGIOPATHY
     Dosage: 2 DF, QD
     Route: 048
     Dates: start: 20070101
  8. VYTORIN [Concomitant]
     Indication: BLOOD CHOLESTEROL
     Dosage: 10/20, 1 DF AT NIGHT

REACTIONS (2)
  - CARDIOMEGALY [None]
  - WEIGHT INCREASED [None]
